FAERS Safety Report 7776265-5 (Version None)
Quarter: 2011Q3

REPORT INFORMATION
  Report Type: 
  Country: None (occurrence: None)
  Receive Date: 20110921
  Receipt Date: 20110921
  Transmission Date: 20111222
  Serious: No
  Sender: FDA-Public Use
  Company Number: None

PATIENT
  Sex: Male

DRUGS (1)
  1. INCIVEK [Suspect]
     Dosage: 750MG TID PO
     Route: 048
     Dates: start: 20110914, end: 20110917

REACTIONS (2)
  - STEVENS-JOHNSON SYNDROME [None]
  - DRUG HYPERSENSITIVITY [None]
